FAERS Safety Report 8440428-6 (Version None)
Quarter: 2012Q2

REPORT INFORMATION
  Report Type: 
  Country: None (occurrence: None)
  Receive Date: 20120615
  Receipt Date: 20120607
  Transmission Date: 20120825
  Serious: Yes (Hospitalization)
  Sender: FDA-Public Use
  Company Number: US-GLAXOSMITHKLINE-A0794767A

PATIENT
  Age: 46 Year
  Sex: Male
  Weight: 84.5 kg

DRUGS (6)
  1. INDOCIN [Concomitant]
  2. AVANDIA [Suspect]
     Indication: TYPE 2 DIABETES MELLITUS
     Dosage: 4MG TWICE PER DAY
     Route: 048
     Dates: start: 20040202, end: 20060801
  3. STARLIX [Concomitant]
  4. ALLOPURINOL [Concomitant]
  5. NEURONTIN [Concomitant]
  6. LISINOPRIL [Concomitant]

REACTIONS (5)
  - EYE DISORDER [None]
  - BONE DISORDER [None]
  - ISCHAEMIC STROKE [None]
  - CARDIAC DISORDER [None]
  - MACULAR OEDEMA [None]
